FAERS Safety Report 16959137 (Version 3)
Quarter: 2020Q1

REPORT INFORMATION
  Report Type: Report from Study
  Country: CA (occurrence: CA)
  Receive Date: 20191024
  Receipt Date: 20200110
  Transmission Date: 20200409
  Serious: Yes (Hospitalization, Other)
  Sender: FDA-Public Use
  Company Number: NVSC2019CA011425

PATIENT
  Age: 51 Year
  Sex: Female

DRUGS (7)
  1. TAFINLAR [Suspect]
     Active Substance: DABRAFENIB MESYLATE
     Dosage: 225 MG
     Route: 048
  2. MEKINIST [Suspect]
     Active Substance: TRAMETINIB DIMETHYL SULFOXIDE
     Dosage: 2 MG, QD
     Route: 048
  3. TAFINLAR [Suspect]
     Active Substance: DABRAFENIB MESYLATE
     Dosage: 75 MG
     Route: 048
     Dates: start: 20190910
  4. MEKINIST [Suspect]
     Active Substance: TRAMETINIB DIMETHYL SULFOXIDE
     Indication: METASTATIC MALIGNANT MELANOMA
     Dosage: 2 MG
     Route: 048
     Dates: start: 20190810, end: 20190819
  5. VANCOMYCIN [Suspect]
     Active Substance: VANCOMYCIN
     Indication: PRODUCT USED FOR UNKNOWN INDICATION
     Route: 065
  6. TAFINLAR [Suspect]
     Active Substance: DABRAFENIB MESYLATE
     Indication: METASTATIC MALIGNANT MELANOMA
     Dosage: 75 MG
     Route: 048
     Dates: start: 20190810, end: 20190819
  7. MEKINIST [Suspect]
     Active Substance: TRAMETINIB DIMETHYL SULFOXIDE
     Dosage: 2 MG
     Route: 048
     Dates: start: 20190910

REACTIONS (15)
  - Dehydration [Unknown]
  - Metastases to adrenals [Unknown]
  - Muscle atrophy [Unknown]
  - Hyperhidrosis [Unknown]
  - Metastases to kidney [Unknown]
  - Metastases to liver [Unknown]
  - Pain in extremity [Unknown]
  - Heart rate abnormal [Unknown]
  - Rash [Not Recovered/Not Resolved]
  - Memory impairment [Unknown]
  - Arthralgia [Unknown]
  - Gait disturbance [Unknown]
  - Weight decreased [Unknown]
  - Pyrexia [Recovering/Resolving]
  - Thyroid disorder [Unknown]

NARRATIVE: CASE EVENT DATE: 20190819
